FAERS Safety Report 22936454 (Version 4)
Quarter: 2025Q2

REPORT INFORMATION
  Report Type: Spontaneous
  Country: US (occurrence: None)
  Receive Date: 20230912
  Receipt Date: 20250507
  Transmission Date: 20250717
  Serious: Yes (Other)
  Sender: INCYTE
  Company Number: US-INCYTE CORPORATION-2023IN009342

PATIENT

DRUGS (3)
  1. JAKAFI [Suspect]
     Active Substance: RUXOLITINIB
     Indication: Platelet disorder
     Dosage: 15 MILLIGRAM, BID
  2. JAKAFI [Suspect]
     Active Substance: RUXOLITINIB
     Indication: Myeloproliferative neoplasm
     Dosage: 15 MILLIGRAM, Q12H
  3. JAKAFI [Suspect]
     Active Substance: RUXOLITINIB
     Indication: Metastases to lung

REACTIONS (9)
  - Skin cancer [Unknown]
  - Dyspnoea [Unknown]
  - Cough [Unknown]
  - Balance disorder [Unknown]
  - Hypoaesthesia [Unknown]
  - Gait disturbance [Unknown]
  - Insomnia [Not Recovered/Not Resolved]
  - Pollakiuria [Not Recovered/Not Resolved]
  - Off label use [Unknown]
